FAERS Safety Report 17672023 (Version 1)
Quarter: 2020Q2

REPORT INFORMATION
  Report Type: Report from Study
  Country: US (occurrence: US)
  Receive Date: 20200415
  Receipt Date: 20200415
  Transmission Date: 20200713
  Serious: Yes (Hospitalization, Other)
  Sender: FDA-Public Use
  Company Number: US-GILEAD-2020-0459157

PATIENT
  Age: 70 Year
  Sex: Male

DRUGS (25)
  1. AZTREONAM LYSINE [Suspect]
     Active Substance: AZTREONAM LYSINE
     Indication: BRONCHIECTASIS
     Dosage: 1 VIAL VIA NEB TID ONE MONTH ON - ONE MONTH OFF
     Route: 055
     Dates: start: 20190725
  2. INCRUSE ELLIPTA [Concomitant]
     Active Substance: UMECLIDINIUM BROMIDE
  3. XARELTO [Concomitant]
     Active Substance: RIVAROXABAN
  4. HYDROCORT [HYDROCORTISONE ACETATE] [Concomitant]
  5. AMOXICILLIN AND CLAVULANATE POTASSIUM [Concomitant]
     Active Substance: AMOXICILLIN\CLAVULANATE POTASSIUM
  6. CYCLOBENZAPRINE. [Concomitant]
     Active Substance: CYCLOBENZAPRINE
  7. FUROSEMIDE. [Concomitant]
     Active Substance: FUROSEMIDE
  8. ATORVASTATIN [Concomitant]
     Active Substance: ATORVASTATIN
  9. CARVEDILOL. [Concomitant]
     Active Substance: CARVEDILOL
  10. METHYLPRED [Concomitant]
     Active Substance: METHYLPREDNISOLONE
  11. POTASSIUM CHLORIDE. [Concomitant]
     Active Substance: POTASSIUM CHLORIDE
  12. TESTOSTERONE CYPIONATE. [Concomitant]
     Active Substance: TESTOSTERONE CYPIONATE
  13. CLOTRIMAZOLE AND BETAMETHASONE [Concomitant]
     Active Substance: BETAMETHASONE\CLOTRIMAZOLE
  14. GABAPENTIN. [Concomitant]
     Active Substance: GABAPENTIN
  15. DOFETILIDE. [Concomitant]
     Active Substance: DOFETILIDE
  16. DOXYCYCLIN [DOXYCYCLINE] [Concomitant]
     Active Substance: DOXYCYCLINE
  17. ENTRESTO [Concomitant]
     Active Substance: SACUBITRIL\VALSARTAN
  18. OSELTAMIVIR [Concomitant]
     Active Substance: OSELTAMIVIR
  19. SYNTHROID [Concomitant]
     Active Substance: LEVOTHYROXINE SODIUM
  20. ARNUITY ELLIPTA [Concomitant]
     Active Substance: FLUTICASONE FUROATE
  21. MOMETASONE [Concomitant]
     Active Substance: MOMETASONE
  22. ACIDOPHILUS [Concomitant]
     Active Substance: LACTOBACILLUS ACIDOPHILUS
  23. IPRATROPIUM BROMIDE/ALBUTEROL SULFATE [Concomitant]
     Active Substance: ALBUTEROL SULFATE\IPRATROPIUM BROMIDE
  24. METFORMIN [Concomitant]
     Active Substance: METFORMIN HYDROCHLORIDE
  25. TRINTELLIX [Concomitant]
     Active Substance: VORTIOXETINE HYDROBROMIDE

REACTIONS (1)
  - Pneumonia [Unknown]

NARRATIVE: CASE EVENT DATE: 202003
